FAERS Safety Report 15470544 (Version 1)
Quarter: 2018Q4

REPORT INFORMATION
  Report Type: Report from Study
  Country: US (occurrence: US)
  Receive Date: 20181005
  Receipt Date: 20181005
  Transmission Date: 20190205
  Serious: No
  Sender: FDA-Public Use
  Company Number: PHEH2018US040580

PATIENT
  Sex: Female

DRUGS (1)
  1. COSENTYX [Suspect]
     Active Substance: SECUKINUMAB
     Indication: ANKYLOSING SPONDYLITIS
     Dosage: 150 MG, Q2W (ONCE EVERY TWO WEEKS)
     Route: 058

REACTIONS (6)
  - Asthenia [Unknown]
  - Fall [Unknown]
  - Condition aggravated [Unknown]
  - Gait disturbance [Unknown]
  - Upper limb fracture [Unknown]
  - Musculoskeletal stiffness [Unknown]
